FAERS Safety Report 7322848-6 (Version None)
Quarter: 2011Q1

REPORT INFORMATION
  Report Type: 
  Country: None (occurrence: None)
  Receive Date: 20110215
  Receipt Date: 20110203
  Transmission Date: 20110831
  Serious: Yes (Hospitalization)
  Sender: FDA-Public Use
  Company Number: 2009US001607

PATIENT
  Age: 50 Year
  Sex: Male
  Weight: 136 kg

DRUGS (2)
  1. ENBREL [Concomitant]
  2. AMEVIVE [Suspect]
     Indication: PSORIASIS
     Dosage: 15 MG, WEEKLY, INTRAMUSCULAR
     Route: 030
     Dates: start: 20050902, end: 20051227

REACTIONS (2)
  - CELLULITIS [None]
  - DRUG INEFFECTIVE [None]
